FAERS Safety Report 23219700 (Version 2)
Quarter: 2023Q4

REPORT INFORMATION
  Report Type: Report from Study
  Country: CN (occurrence: CN)
  Receive Date: 20231122
  Receipt Date: 20231219
  Transmission Date: 20240110
  Serious: Yes (Hospitalization)
  Sender: FDA-Public Use
  Company Number: CN-Eisai-EC-2023-153206

PATIENT
  Sex: Male
  Weight: 56 kg

DRUGS (10)
  1. LENVATINIB [Suspect]
     Active Substance: LENVATINIB
     Indication: Hepatocellular carcinoma
     Route: 048
     Dates: start: 20210429, end: 20210527
  2. LENVATINIB [Suspect]
     Active Substance: LENVATINIB
     Route: 048
     Dates: start: 20210528
  3. TORIPALIMAB [Suspect]
     Active Substance: TORIPALIMAB
     Indication: Hepatocellular carcinoma
     Dosage: 240MG/PLACEBO
     Dates: start: 20210429
  4. NIFEDIPINE [Concomitant]
     Active Substance: NIFEDIPINE
     Indication: Hypertension
     Dates: start: 20210521
  5. ENTECARVIR [Concomitant]
     Indication: Chronic hepatitis B
     Dates: start: 20210422
  6. BEPOTASTINE BESYLATE [Concomitant]
     Active Substance: BEPOTASTINE BESYLATE
     Indication: Rash
     Dates: start: 20210729
  7. TRIAMCINOLONE ACETONIDE [Concomitant]
     Active Substance: TRIAMCINOLONE ACETONIDE
     Indication: Rash
     Dates: start: 20210729
  8. FUSIDIC ACID [Concomitant]
     Active Substance: FUSIDIC ACID
     Indication: Herpes zoster
     Dates: start: 20210629, end: 20210711
  9. RECOMBINANT HUMAN BASIC FIBROBLAST GROWTH FACTOR [Concomitant]
     Dates: start: 20210629, end: 20210711
  10. POLYMYXIN B [Concomitant]
     Active Substance: POLYMYXIN B
     Dates: start: 20210629, end: 20210711

REACTIONS (2)
  - Anal abscess [Recovered/Resolved]
  - Anal haemorrhage [Recovered/Resolved]

NARRATIVE: CASE EVENT DATE: 20210722
